FAERS Safety Report 8406589-X (Version None)
Quarter: 2012Q2

REPORT INFORMATION
  Report Type: 
  Country: None (occurrence: None)
  Receive Date: 20120529
  Receipt Date: 20110331
  Transmission Date: 20120825
  Serious: Yes (Hospitalization, Other)
  Sender: FDA-Public Use
  Company Number: EU-2011-10022

PATIENT
  Age: 73 Year
  Sex: Male

DRUGS (11)
  1. LANTUS [Concomitant]
  2. ISCOVER (CLOPIDOGREL SULFATE) TABLET [Concomitant]
  3. SIMVASTATIN [Concomitant]
  4. ENALAPRIL MALEATE [Concomitant]
  5. MOTILIUM (DOMPERIDONE MALEATE) TABLET [Concomitant]
  6. TAMSULOSIN HCL [Concomitant]
  7. HYDROCHLOROTHIAZIDE [Concomitant]
  8. DIANBEN (METFORMIN HYDROCHLORIDE) TABLET [Concomitant]
  9. HYDREA (HYDROXYCARBAMIDE) TABLET [Concomitant]
  10. OMEPRAZOLE [Concomitant]
  11. PLETAL [Suspect]
     Indication: INTERMITTENT CLAUDICATION
     Dosage: 100 MG MILLIGRAM(S), BID, ORAL
     Route: 048
     Dates: start: 20101217, end: 20110102

REACTIONS (3)
  - COAGULOPATHY [None]
  - HEPATITIS CHOLESTATIC [None]
  - PANCREATIC CARCINOMA [None]
